FAERS Safety Report 6967392-0 (Version None)
Quarter: 2010Q3

REPORT INFORMATION
  Report Type: 
  Country: None (occurrence: None)
  Receive Date: 20100901
  Receipt Date: 20100825
  Transmission Date: 20110219
  Serious: Yes (Hospitalization)
  Sender: FDA-Public Use
  Company Number: 2010SP041387

PATIENT
  Age: 47 Year
  Sex: Female
  Weight: 59 kg

DRUGS (3)
  1. PANCURONIUM BROMIDE [Suspect]
     Indication: NEUROMUSCULAR BLOCKING THERAPY
     Dosage: 24 MG;QD; INDRP
     Route: 041
     Dates: start: 20100329, end: 20100401
  2. ORGAPRONE INJECTION (DEXAMETHASONE SODIUM PHOSPHATE /00016002/) [Suspect]
     Indication: ASTHMA
     Dosage: 3.8 MG;QID;INDRP
     Route: 041
     Dates: start: 20100329, end: 20100409
  3. DORMICUM (MIDAZOLAM /00634101/) [Suspect]
     Indication: SEDATIVE THERAPY
     Dosage: 50 MG; QD; INDRP
     Route: 041
     Dates: start: 20100329, end: 20100405

REACTIONS (2)
  - HYPERCREATINAEMIA [None]
  - MUSCULAR WEAKNESS [None]
